FAERS Safety Report 21944694 (Version 1)
Quarter: 2023Q1

REPORT INFORMATION
  Report Type: Spontaneous
  Country: LT (occurrence: LT)
  Receive Date: 20230202
  Receipt Date: 20230202
  Transmission Date: 20230417
  Serious: Yes (Other)
  Sender: FDA-Public Use
  Company Number: LT-JNJFOC-20230147917

PATIENT
  Sex: Female

DRUGS (8)
  1. THALIDOMIDE [Suspect]
     Active Substance: THALIDOMIDE
     Indication: Plasma cell myeloma
     Dates: start: 20221108, end: 20230104
  2. DEXAMETHASONE [Suspect]
     Active Substance: DEXAMETHASONE
     Indication: Plasma cell myeloma
     Dosage: DAY1 -2, 8-9
     Dates: start: 20221108, end: 20230104
  3. DARZALEX [Suspect]
     Active Substance: DARATUMUMAB
     Indication: Plasma cell myeloma
     Dosage: DAY 1
     Dates: start: 20221108, end: 20230104
  4. CARFILZOMIB [Suspect]
     Active Substance: CARFILZOMIB
     Indication: Plasma cell myeloma
     Dosage: DAY 1-2, 8-9,
     Dates: start: 20221108, end: 20230104
  5. ETOPOSIDE [Suspect]
     Active Substance: ETOPOSIDE
     Indication: Plasma cell myeloma
     Dosage: DAY 4-7
     Dates: start: 20221108, end: 20230104
  6. DOXORUBICIN [Suspect]
     Active Substance: DOXORUBICIN
     Indication: Plasma cell myeloma
     Dosage: DAY 4 -7
     Dates: start: 20221108, end: 20230104
  7. CYCLOPHOSPHAMIDE [Suspect]
     Active Substance: CYCLOPHOSPHAMIDE
     Indication: Plasma cell myeloma
     Dosage: DAY 4-7
     Dates: start: 20221108, end: 20230104
  8. CISPLATIN [Suspect]
     Active Substance: CISPLATIN
     Indication: Plasma cell myeloma
     Dosage: DAY 4-7
     Dates: start: 20221108, end: 20230104

REACTIONS (2)
  - Pulmonary alveolar haemorrhage [Unknown]
  - Therapeutic response decreased [Unknown]
